FAERS Safety Report 6396024-8 (Version None)
Quarter: 2009Q4

REPORT INFORMATION
  Report Type: 
  Country: None (occurrence: None)
  Receive Date: 20091009
  Receipt Date: 20090929
  Transmission Date: 20100525
  Serious: Yes (Death, Hospitalization, Other)
  Sender: FDA-Public Use
  Company Number: US-ELI_LILLY_AND_COMPANY-US200909000497

PATIENT
  Age: 76 Year
  Sex: Female

DRUGS (2)
  1. ZYPREXA [Suspect]
     Indication: BIPOLAR I DISORDER
  2. PROZAC [Suspect]
     Indication: BIPOLAR I DISORDER

REACTIONS (3)
  - CLOSTRIDIAL INFECTION [None]
  - HYPONATRAEMIA [None]
  - URINARY TRACT INFECTION [None]
